FAERS Safety Report 6733080-9 (Version None)
Quarter: 2010Q2

REPORT INFORMATION
  Report Type: 
  Country: None (occurrence: None)
  Receive Date: 20100518
  Receipt Date: 20100506
  Transmission Date: 20101027
  Serious: Yes (Hospitalization)
  Sender: FDA-Public Use
  Company Number: TPG2010A00335

PATIENT
  Age: 54 Year
  Sex: Male

DRUGS (4)
  1. LANSOPRAZOLE [Suspect]
     Indication: DRUG USE FOR UNKNOWN INDICATION
     Dosage: PER ORAL
     Route: 048
     Dates: start: 19990101
  2. MORPHIN ^AL^ RETARD(MORPHINE) [Concomitant]
  3. METAMIZOLE (METAMIZOLE) [Concomitant]
  4. LYRICA [Concomitant]

REACTIONS (6)
  - ARTHRALGIA [None]
  - GALLBLADDER DISORDER [None]
  - INTERVERTEBRAL DISC DISORDER [None]
  - INTERVERTEBRAL DISC PROTRUSION [None]
  - MYALGIA [None]
  - MYOSCLEROSIS [None]
